FAERS Safety Report 8112261-6 (Version None)
Quarter: 2012Q1

REPORT INFORMATION
  Report Type: 
  Country: None (occurrence: None)
  Receive Date: 20120203
  Receipt Date: 20120203
  Transmission Date: 20120608
  Serious: Yes (Life-Threatening, Other)
  Sender: FDA-Public Use
  Company Number: None

PATIENT
  Sex: Female
  Weight: 52.7 kg

DRUGS (3)
  1. SODIUM CHLORIDE [Concomitant]
  2. ISUPREL [Suspect]
     Indication: VENTRICULAR EXTRASYSTOLES
     Dosage: 2 MCG
     Route: 041
  3. POTASSIUM CHLORIDE [Concomitant]

REACTIONS (3)
  - MUSCLE TIGHTNESS [None]
  - HYPERTONIA [None]
  - MUSCULOSKELETAL STIFFNESS [None]
